FAERS Safety Report 10083237 (Version 1)
Quarter: 2014Q2

REPORT INFORMATION
  Report Type: Spontaneous
  Country: US (occurrence: None)
  Receive Date: 20140415
  Receipt Date: 20140415
  Transmission Date: 20141212
  Serious: Yes (Other)
  Sender: FDA-Public Use
  Company Number: 2288341

PATIENT
  Age: 43 Year
  Sex: Male
  Weight: 96 kg

DRUGS (2)
  1. PROPOFOL [Suspect]
     Indication: SEDATION
     Route: 041
  2. ROPIVACAINE [Suspect]
     Indication: NERVE BLOCK

REACTIONS (8)
  - Drug interaction [None]
  - Hypotension [None]
  - Somnolence [None]
  - Dizziness [None]
  - Hypoaesthesia oral [None]
  - Dysgeusia [None]
  - Muscle twitching [None]
  - Toxicity to various agents [None]
